FAERS Safety Report 11049948 (Version 1)
Quarter: 2015Q2

REPORT INFORMATION
  Report Type: Spontaneous
  Country: US (occurrence: US)
  Receive Date: 20150420
  Receipt Date: 20150420
  Transmission Date: 20150821
  Serious: Yes (Other)
  Sender: FDA-Public Use
  Company Number: US-PURDUE PHARMA-USA-2015-0122253

PATIENT
  Sex: Male

DRUGS (1)
  1. OXYCONTIN [Suspect]
     Active Substance: OXYCODONE HYDROCHLORIDE
     Indication: PAIN
     Dosage: UNKNOWN
     Route: 048

REACTIONS (9)
  - Restless legs syndrome [Unknown]
  - Diarrhoea [Unknown]
  - Intentional product misuse [Unknown]
  - Headache [Unknown]
  - Malaise [Unknown]
  - Drug abuse [Unknown]
  - Influenza [Unknown]
  - Pain [Unknown]
  - Vomiting [Unknown]
